FAERS Safety Report 16093765 (Version 1)
Quarter: 2019Q1

REPORT INFORMATION
  Report Type: Report from Study
  Country: IT (occurrence: IT)
  Receive Date: 20190320
  Receipt Date: 20190320
  Transmission Date: 20190418
  Serious: Yes (Hospitalization)
  Sender: FDA-Public Use
  Company Number: IT-ACCORD-113732

PATIENT
  Age: 50 Year
  Sex: Male
  Weight: 65 kg

DRUGS (9)
  1. BENERVA [Concomitant]
     Active Substance: THIAMINE HYDROCHLORIDE
  2. CLOZAPINE. [Suspect]
     Active Substance: CLOZAPINE
     Route: 048
  3. CONGESCOR [Concomitant]
     Active Substance: BISOPROLOL
  4. LASIX [Concomitant]
     Active Substance: FUROSEMIDE
  5. PAROXETINE. [Concomitant]
     Active Substance: PAROXETINE
  6. DEPAKIN CHRONO [Suspect]
     Active Substance: VALPROIC ACID
     Route: 048
  7. ENAPREN [Concomitant]
     Active Substance: ENALAPRIL MALEATE
  8. RIVOTRIL [Concomitant]
     Active Substance: CLONAZEPAM
  9. OMEPRAZOLE. [Concomitant]
     Active Substance: OMEPRAZOLE

REACTIONS (9)
  - Hypotension [Recovered/Resolved]
  - Miosis [Recovered/Resolved]
  - Coma [Recovered/Resolved]
  - Metabolic acidosis [Recovered/Resolved]
  - Blood creatine phosphokinase increased [Recovered/Resolved]
  - Intentional self-injury [Unknown]
  - Intentional overdose [Unknown]
  - Pneumonia aspiration [Recovered/Resolved]
  - Coma scale abnormal [Recovered/Resolved]

NARRATIVE: CASE EVENT DATE: 20180817
